FAERS Safety Report 7814974-X (Version None)
Quarter: 2011Q4

REPORT INFORMATION
  Report Type: 
  Country: None (occurrence: None)
  Receive Date: 20111014
  Receipt Date: 20111007
  Transmission Date: 20120403
  Serious: Yes (Hospitalization)
  Sender: FDA-Public Use
  Company Number: US-GLAXOSMITHKLINE-A0749342A

PATIENT
  Age: 54 Year
  Sex: Male
  Weight: 70.5 kg

DRUGS (3)
  1. AVANDIA [Suspect]
     Indication: DIABETES MELLITUS
     Dosage: 8MG PER DAY
     Route: 048
     Dates: start: 19970701
  2. GLYBURIDE [Concomitant]
  3. METFORMIN HYDROCHLORIDE [Concomitant]

REACTIONS (1)
  - HEART INJURY [None]
